FAERS Safety Report 6003596-1 (Version None)
Quarter: 2008Q4

REPORT INFORMATION
  Report Type: 
  Country: None (occurrence: None)
  Receive Date: 20081212
  Receipt Date: 20081128
  Transmission Date: 20090506
  Serious: Yes (Hospitalization, Other)
  Sender: FDA-Public Use
  Company Number: 2008AL012262

PATIENT
  Age: 68 Year
  Sex: Female

DRUGS (10)
  1. CITALOPRAM HYDROBROMIDE [Suspect]
     Indication: DEPRESSION
     Dosage: 20 MG;BID;PO
     Route: 048
     Dates: end: 20081012
  2. LANSOPRAZOLE [Concomitant]
  3. ESOMEPRAZOLE MAGNESIUM [Concomitant]
  4. VITAMIN B COMPLEX CAP [Concomitant]
  5. SERETIDE [Concomitant]
  6. ZOPICLONE [Concomitant]
  7. PERINDOPRIL [Concomitant]
  8. CO-DYDRAMOL [Concomitant]
  9. ALBUTEROL SULFATE [Concomitant]
  10. NIFEDIPINE [Concomitant]

REACTIONS (4)
  - CHEST PAIN [None]
  - CHRONIC OBSTRUCTIVE PULMONARY DISEASE [None]
  - CONDITION AGGRAVATED [None]
  - HYPONATRAEMIA [None]
